FAERS Safety Report 21283500 (Version 3)
Quarter: 2022Q4

REPORT INFORMATION
  Report Type: Report from Study
  Country: US (occurrence: US)
  Receive Date: 20220901
  Receipt Date: 20221202
  Transmission Date: 20230113
  Serious: Yes (Hospitalization)
  Sender: FDA-Public Use
  Company Number: US-GW PHARMA-2022-US-028054

PATIENT
  Sex: Male

DRUGS (4)
  1. EPIDIOLEX [Suspect]
     Active Substance: CANNABIDIOL
     Indication: Seizure
     Dosage: 0.5 MILLILITER, BID FOR 7 DAYS, THEN 1 ML 2 TIMES A DAY THEREAFTER
     Route: 048
     Dates: start: 20220809
  2. EPIDIOLEX [Suspect]
     Active Substance: CANNABIDIOL
     Indication: Gait disturbance
     Dosage: 2 MILLILITER
     Route: 048
     Dates: start: 202209
  3. EPIDIOLEX [Suspect]
     Active Substance: CANNABIDIOL
     Indication: Lennox-Gastaut syndrome
  4. EPIDIOLEX [Suspect]
     Active Substance: CANNABIDIOL
     Indication: Brain neoplasm malignant

REACTIONS (4)
  - Hospitalisation [Unknown]
  - Diarrhoea [Unknown]
  - Off label use [Unknown]
  - Drug ineffective [Unknown]
